FAERS Safety Report 7475650-9 (Version None)
Quarter: 2011Q2

REPORT INFORMATION
  Report Type: 
  Country: None (occurrence: None)
  Receive Date: 20110504
  Receipt Date: 20110420
  Transmission Date: 20111010
  Serious: Yes (Hospitalization)
  Sender: FDA-Public Use
  Company Number: 017439

PATIENT
  Sex: Female
  Weight: 66 kg

DRUGS (13)
  1. PREDNISOLONE [Concomitant]
  2. FAMOTIDINE [Concomitant]
  3. TEPRENONE [Concomitant]
  4. FOLIC ACID [Concomitant]
  5. VALPROATE SODIUM [Concomitant]
  6. INDOMETHACIN [Concomitant]
  7. ZOLPIDEM TARTRATE [Concomitant]
  8. CIMZIA [Suspect]
     Indication: RHEUMATOID ARTHRITIS
     Dosage: SEE IMAGE
     Route: 058
     Dates: start: 20110325, end: 20110101
  9. CIMZIA [Suspect]
     Indication: RHEUMATOID ARTHRITIS
     Dosage: SEE IMAGE
     Route: 058
     Dates: start: 20110420
  10. CIMZIA [Suspect]
     Indication: RHEUMATOID ARTHRITIS
     Dosage: SEE IMAGE
     Route: 058
     Dates: start: 20090607
  11. CIMZIA [Suspect]
     Indication: RHEUMATOID ARTHRITIS
     Dosage: SEE IMAGE
     Route: 058
     Dates: start: 20101027, end: 20110216
  12. CIMZIA [Suspect]
     Indication: RHEUMATOID ARTHRITIS
     Dosage: SEE IMAGE
     Route: 058
     Dates: start: 20091228, end: 20100804
  13. OLMESARTAN MEDOXOMIL [Concomitant]

REACTIONS (16)
  - VOMITING [None]
  - BLOOD PRESSURE INCREASED [None]
  - CAROTID ARTERY ANEURYSM [None]
  - DYSARTHRIA [None]
  - GAZE PALSY [None]
  - FAECAL INCONTINENCE [None]
  - BLOOD SODIUM DECREASED [None]
  - RUPTURED CEREBRAL ANEURYSM [None]
  - CEREBRAL INFARCTION [None]
  - ANTICONVULSANT DRUG LEVEL DECREASED [None]
  - SUBARACHNOID HAEMORRHAGE [None]
  - FALL [None]
  - URINARY INCONTINENCE [None]
  - CONVULSION [None]
  - EYE HAEMORRHAGE [None]
  - AORTIC ANEURYSM [None]
